FAERS Safety Report 23249650 (Version 1)
Quarter: 2023Q4

REPORT INFORMATION
  Report Type: Spontaneous
  Country: US (occurrence: US)
  Receive Date: 20231201
  Receipt Date: 20231201
  Transmission Date: 20240110
  Serious: Yes (Other)
  Sender: FDA-Public Use
  Company Number: US-TAKEDA-2023TUS114916

PATIENT
  Sex: Male
  Weight: 73 kg

DRUGS (1)
  1. ENTYVIO [Suspect]
     Active Substance: VEDOLIZUMAB
     Indication: Crohn^s disease
     Dosage: UNK
     Route: 042
     Dates: start: 2019

REACTIONS (3)
  - Gastrointestinal scarring [Unknown]
  - Drug level decreased [Unknown]
  - Inappropriate schedule of product administration [Unknown]
